FAERS Safety Report 12546830 (Version 2)
Quarter: 2016Q3

REPORT INFORMATION
  Report Type: Report from Study
  Country: IT (occurrence: IT)
  Receive Date: 20160711
  Receipt Date: 20160715
  Transmission Date: 20161109
  Serious: Yes (Other)
  Sender: FDA-Public Use
  Company Number: IT-GILEAD-2016-0222116

PATIENT
  Age: 59 Year
  Sex: Male
  Weight: 63 kg

DRUGS (6)
  1. METHADONE [Concomitant]
     Active Substance: METHADONE HYDROCHLORIDE
     Indication: DRUG DEPENDENCE
     Dosage: 15 MG, QD
     Route: 065
     Dates: start: 20130204
  2. RANITIDINE. [Concomitant]
     Active Substance: RANITIDINE
     Indication: PROPHYLAXIS AGAINST GASTROINTESTINAL ULCER
     Dosage: 300 MG, QD
     Dates: start: 20150304
  3. ATENOLOL. [Concomitant]
     Active Substance: ATENOLOL
     Indication: PORTAL HYPERTENSION
     Dosage: 20 MG, BID
     Route: 065
     Dates: start: 20150304
  4. EMTRICITABINE/RILPIVIRINE/TENOFOVIR DF [Suspect]
     Active Substance: EMTRICITABINE\RILPIVIRINE\TENOFOVIR DISOPROXIL FUMARATE
     Indication: HIV INFECTION
     Dosage: 1 DF, QD
     Route: 065
     Dates: start: 20150304
  5. LACTITOL MONOHYDRATE [Concomitant]
     Active Substance: LACTITOL MONOHYDRATE
     Indication: HEPATIC ENCEPHALOPATHY
     Dosage: 15 ML, TID
     Route: 065
     Dates: start: 20150304
  6. CHOLECALCIFEROL [Concomitant]
     Active Substance: CHOLECALCIFEROL
     Indication: VITAMIN D DEFICIENCY
     Dosage: 7500 IU, Q1WK
     Route: 065
     Dates: start: 20150304

REACTIONS (2)
  - Osteopenia [Unknown]
  - Osteoporosis [Unknown]
